FAERS Safety Report 13636461 (Version 1)
Quarter: 2017Q2

REPORT INFORMATION
  Report Type: Spontaneous
  Country: GB (occurrence: GB)
  Receive Date: 20170609
  Receipt Date: 20170609
  Transmission Date: 20170830
  Serious: Yes (Other)
  Sender: FDA-Public Use
  Company Number: GB-TEVA-776649ACC

PATIENT
  Age: 47 Year
  Sex: Male
  Weight: 73.47 kg

DRUGS (2)
  1. MOMETASONE FUROATE. [Concomitant]
     Active Substance: MOMETASONE FUROATE
  2. TEVA UK LORATADINE [Suspect]
     Active Substance: LORATADINE
     Indication: ALLERGY TO ANIMAL
     Route: 048
     Dates: start: 20161206, end: 20170510

REACTIONS (3)
  - Insomnia [Recovered/Resolved]
  - Headache [Recovered/Resolved]
  - Fatigue [Recovered/Resolved]

NARRATIVE: CASE EVENT DATE: 20161225
